FAERS Safety Report 7055393-6 (Version None)
Quarter: 2010Q4

REPORT INFORMATION
  Report Type: 
  Country: None (occurrence: None)
  Receive Date: 20101021
  Receipt Date: 20101018
  Transmission Date: 20110411
  Serious: Yes (Other)
  Sender: FDA-Public Use
  Company Number: US-JNJCH-2010022624

PATIENT
  Age: 80 Year
  Sex: Female
  Weight: 68 kg

DRUGS (4)
  1. ZYRTEC [Suspect]
     Indication: RHINORRHOEA
     Dosage: TEXT:1 TABLET DAILY
     Route: 048
  2. SYNTHROID [Suspect]
     Indication: THYROID DISORDER
     Dosage: TEXT:30 MG 1 PER DAY
     Route: 065
  3. VITAMIN D [Suspect]
     Indication: CARDIOVASCULAR EVENT PROPHYLAXIS
     Dosage: TEXT:800 MG 1 DAILY
     Route: 065
  4. FISH OIL [Suspect]
     Indication: CARDIOVASCULAR EVENT PROPHYLAXIS
     Dosage: TEXT:300 MG 1 DAILY
     Route: 065

REACTIONS (7)
  - COUGH [None]
  - DEAFNESS UNILATERAL [None]
  - FOREIGN BODY [None]
  - HEADACHE [None]
  - HYPERSENSITIVITY [None]
  - OROPHARYNGEAL PAIN [None]
  - WRONG DRUG ADMINISTERED [None]
